FAERS Safety Report 5489503-9 (Version None)
Quarter: 2007Q4

REPORT INFORMATION
  Report Type: 
  Country: None (occurrence: None)
  Receive Date: 20071016
  Receipt Date: 20071016
  Transmission Date: 20080405
  Serious: Yes (Hospitalization)
  Sender: FDA-Public Use
  Company Number: None

PATIENT
  Age: 54 Year
  Sex: Male

DRUGS (1)
  1. DOCETAXEL [Suspect]
     Indication: PROSTATE CANCER METASTATIC
     Dosage: 140MG ONCE IV
     Route: 042
     Dates: start: 20070926, end: 20070926

REACTIONS (8)
  - CONSTIPATION [None]
  - GASTRIC HAEMORRHAGE [None]
  - GASTRITIS [None]
  - HEPATIC ENZYME INCREASED [None]
  - HYPOTENSION [None]
  - LEUKOPENIA [None]
  - NAUSEA [None]
  - VOMITING [None]
